FAERS Safety Report 7991857-6 (Version None)
Quarter: 2011Q4

REPORT INFORMATION
  Report Type: 
  Country: None (occurrence: None)
  Receive Date: 20111219
  Receipt Date: 20111216
  Transmission Date: 20120403
  Serious: No
  Sender: FDA-Public Use
  Company Number: US-PFIZER INC-2011306636

PATIENT
  Sex: Female

DRUGS (1)
  1. AZITHROMYCIN [Suspect]
     Dosage: 200/5 MG/ML, UNK
     Route: 048

REACTIONS (2)
  - URTICARIA [None]
  - ABDOMINAL PAIN UPPER [None]
